FAERS Safety Report 4560726-6 (Version None)
Quarter: 2005Q1

REPORT INFORMATION
  Report Type: 
  Country: None (occurrence: None)
  Receive Date: 20050121
  Receipt Date: 20050103
  Transmission Date: 20050727
  Serious: Yes (Hospitalization)
  Sender: FDA-Public Use
  Company Number: CEL-2005-00024-SLO

PATIENT
  Age: 25 Year
  Sex: Female
  Weight: 60 kg

DRUGS (8)
  1. EQUASYM 10MG (METHYLPHENIDATE HYDROCHLORIDE) [Suspect]
     Dosage: 100MG, ONCE, PO
     Route: 048
     Dates: start: 20041231, end: 20041231
  2. CETIRIZINE (CETIRIZINE) [Suspect]
     Dosage: 20MG, ONCE, PO
     Route: 048
     Dates: start: 20041231, end: 20041231
  3. ACETAMINOPHEN [Suspect]
     Dosage: 1200MG, ONCE, PO
     Route: 048
     Dates: start: 20041231, end: 20041231
  4. IBUPROFEN [Suspect]
     Dosage: 1600MG, ONCE, PO
     Route: 048
     Dates: start: 20041231, end: 20041231
  5. IBUPROFEN [Suspect]
     Dosage: 2400 MG, ONCE, PO
     Route: 048
     Dates: start: 20041231, end: 20041231
  6. ACETAMINOPHEN [Suspect]
     Dosage: 2500 MG, ONCE, RECTAL
     Route: 054
     Dates: start: 20041231, end: 20041231
  7. PANTOPRAZOLE SODIUM [Suspect]
     Dosage: 400 MG, ONCE, PO
     Route: 048
     Dates: start: 20041231, end: 20041231
  8. CEPHALEXIN [Suspect]
     Dosage: 8000MG, ONCE, PO
     Route: 048
     Dates: start: 20041231, end: 20041231

REACTIONS (3)
  - AGITATION [None]
  - INTENTIONAL MISUSE [None]
  - SUICIDE ATTEMPT [None]
